FAERS Safety Report 8450543-9 (Version None)
Quarter: 2012Q2

REPORT INFORMATION
  Report Type: 
  Country: None (occurrence: None)
  Receive Date: 20120614
  Receipt Date: 20120614
  Transmission Date: 20120825
  Serious: Yes (Hospitalization)
  Sender: FDA-Public Use
  Company Number: None

PATIENT
  Age: 73 Year
  Sex: Male
  Weight: 100 kg

DRUGS (14)
  1. PRADAXA [Suspect]
     Indication: ATRIAL FIBRILLATION
     Dosage: 150MG BID PO
     Route: 048
     Dates: start: 20120514, end: 20120516
  2. METOCLOPRAMIDE [Concomitant]
  3. COMBIVENT [Concomitant]
  4. MELATONIN [Concomitant]
  5. ASPIRIN [Suspect]
     Indication: CORONARY ARTERY DISEASE
     Dosage: 81MG DAILY PO
     Route: 048
     Dates: start: 20120514, end: 20120516
  6. ASPIRIN [Suspect]
     Indication: CORONARY ARTERIAL STENT INSERTION
     Dosage: 81MG DAILY PO
     Route: 048
     Dates: start: 20120514, end: 20120516
  7. SINGULAIR [Concomitant]
  8. VITAMIN B COMPLEX WITH C [Concomitant]
  9. KLOR-CON [Concomitant]
  10. METOPROLOL [Concomitant]
  11. PLAVIX [Concomitant]
  12. SIMVASTATIN [Concomitant]
  13. COENZYME Q10 [Concomitant]
  14. DIOVAN HCT [Concomitant]

REACTIONS (1)
  - HAEMATOCHEZIA [None]
